FAERS Safety Report 13339975 (Version 2)
Quarter: 2017Q1

REPORT INFORMATION
  Report Type: Spontaneous
  Country: PR (occurrence: PR)
  Receive Date: 20170316
  Receipt Date: 20170320
  Transmission Date: 20170428
  Serious: Yes (Death)
  Sender: FDA-Public Use
  Company Number: PR-ROCHE-1907318

PATIENT
  Age: 45 Year
  Sex: Female

DRUGS (1)
  1. AVASTIN [Suspect]
     Active Substance: BEVACIZUMAB
     Indication: OVARIAN CANCER
     Route: 042
     Dates: start: 20170222, end: 20170314

REACTIONS (1)
  - Death [Fatal]

NARRATIVE: CASE EVENT DATE: 20170314
